FAERS Safety Report 6440661-9 (Version None)
Quarter: 2009Q4

REPORT INFORMATION
  Report Type: 
  Country: None (occurrence: None)
  Receive Date: 20091116
  Receipt Date: 20091105
  Transmission Date: 20100525
  Serious: Yes (Hospitalization)
  Sender: FDA-Public Use
  Company Number: US-BIOGENIDEC-2008BI032198

PATIENT
  Age: 73 Year
  Sex: Female

DRUGS (3)
  1. TYSABRI [Suspect]
     Indication: MULTIPLE SCLEROSIS
     Route: 042
     Dates: start: 20050201, end: 20050201
  2. TYSABRI [Suspect]
     Route: 042
     Dates: start: 20070109, end: 20081008
  3. TYSABRI [Suspect]
     Route: 042
     Dates: start: 20091104

REACTIONS (3)
  - FALL [None]
  - LOWER LIMB FRACTURE [None]
  - UPPER LIMB FRACTURE [None]
